FAERS Safety Report 6176033-4 (Version None)
Quarter: 2009Q2

REPORT INFORMATION
  Report Type: 
  Country: None (occurrence: None)
  Receive Date: 20090501
  Receipt Date: 20090424
  Transmission Date: 20091009
  Serious: Yes (Life-Threatening, Other)
  Sender: FDA-Public Use
  Company Number: GB-PFIZER INC-2008021173

PATIENT

DRUGS (5)
  1. CHAMPIX [Suspect]
     Indication: SMOKING CESSATION THERAPY
     Dosage: 1 MG, 2X/DAY
     Route: 048
     Dates: start: 20071121, end: 20071201
  2. CLIMAGEST [Concomitant]
     Dosage: UNK
     Route: 048
     Dates: start: 20061030
  3. TETANUS TOXOID [Concomitant]
     Dosage: UNK
     Route: 030
     Dates: start: 20071120, end: 20071120
  4. DIPHTHERIA VACCINE [Concomitant]
     Dosage: UNK
     Route: 030
     Dates: start: 20071120, end: 20071120
  5. POLIO-VACCINE [Concomitant]
     Dosage: UNK
     Route: 030
     Dates: start: 20071120, end: 20071120

REACTIONS (12)
  - BLINDNESS [None]
  - DISSOCIATION [None]
  - DIZZINESS [None]
  - DYSGEUSIA [None]
  - FEELING ABNORMAL [None]
  - HEADACHE [None]
  - MALAISE [None]
  - MOVEMENT DISORDER [None]
  - PAIN IN EXTREMITY [None]
  - PARAESTHESIA [None]
  - SENSATION OF HEAVINESS [None]
  - VISION BLURRED [None]
